FAERS Safety Report 22321972 (Version 1)
Quarter: 2023Q2

REPORT INFORMATION
  Report Type: Spontaneous
  Country: CN (occurrence: CN)
  Receive Date: 20230516
  Receipt Date: 20230516
  Transmission Date: 20230721
  Serious: Yes (Hospitalization)
  Sender: FDA-Public Use
  Company Number: None

PATIENT
  Age: 44 Year
  Sex: Male
  Weight: 85 kg

DRUGS (6)
  1. CYCLOPHOSPHAMIDE [Suspect]
     Active Substance: CYCLOPHOSPHAMIDE
     Indication: Acute leukaemia
     Dosage: 1.2 G, QD, DILUTED WITH 250 ML OF SODIUM CHLORIDE (NS)
     Route: 041
     Dates: start: 20230412, end: 20230426
  2. SODIUM CHLORIDE [Suspect]
     Active Substance: SODIUM CHLORIDE
     Indication: Medication dilution
     Dosage: 250 ML, QD, USED TO DILUTE 1.2 G OF CYCLOPHOSPHAMIDE
     Route: 041
     Dates: start: 20230412, end: 20230426
  3. SODIUM CHLORIDE [Suspect]
     Active Substance: SODIUM CHLORIDE
     Dosage: 250 ML, QD, USED TO DILUTE 15 MG OF IDARUBICIN HYDROCHLORIDE
     Route: 041
     Dates: start: 20230412, end: 20230426
  4. SODIUM CHLORIDE [Suspect]
     Active Substance: SODIUM CHLORIDE
     Dosage: 100 ML, QD, USED TO DILUTE 2 MG OF VINCRISTINE SULFATE
     Route: 041
     Dates: start: 20230412, end: 20230503
  5. IDARUBICIN HYDROCHLORIDE [Suspect]
     Active Substance: IDARUBICIN HYDROCHLORIDE
     Indication: Acute leukaemia
     Dosage: 15 MG, QD, DILUTED WITH 250 ML OF SODIUM CHLORIDE (NS)
     Route: 041
     Dates: start: 20230412, end: 20230426
  6. VINCRISTINE SULFATE [Suspect]
     Active Substance: VINCRISTINE SULFATE
     Indication: Acute leukaemia
     Dosage: 2 MG, QD, DILUTED WITH 100 ML OF SODIUM CHLORIDE (NS)
     Route: 041
     Dates: start: 20230412, end: 20230503

REACTIONS (1)
  - White blood cell count decreased [Not Recovered/Not Resolved]

NARRATIVE: CASE EVENT DATE: 20230419
